FAERS Safety Report 7332692-1 (Version None)
Quarter: 2011Q1

REPORT INFORMATION
  Report Type: 
  Country: None (occurrence: None)
  Receive Date: 20110304
  Receipt Date: 20110221
  Transmission Date: 20110831
  Serious: Yes (Other)
  Sender: FDA-Public Use
  Company Number: PHHY2011PL14151

PATIENT
  Sex: Female
  Weight: 73.5 kg

DRUGS (1)
  1. METHOTREXATE [Suspect]
     Indication: RHEUMATOID ARTHRITIS
     Dosage: 10 MG, UNK
     Route: 048
     Dates: start: 20100526, end: 20100712

REACTIONS (4)
  - DYSPEPSIA [None]
  - MOUTH ULCERATION [None]
  - VISUAL IMPAIRMENT [None]
  - DIZZINESS [None]
